FAERS Safety Report 11905721 (Version 1)
Quarter: 2016Q1

REPORT INFORMATION
  Report Type: Spontaneous
  Country: US (occurrence: US)
  Receive Date: 20160110
  Receipt Date: 20160110
  Transmission Date: 20160526
  Serious: No
  Sender: FDA-Public Use
  Company Number: US-TEVA-623326USA

PATIENT
  Age: 77 Year
  Sex: Female

DRUGS (6)
  1. KLOR-CON [Concomitant]
     Active Substance: POTASSIUM CHLORIDE
  2. VOLTAREN [Concomitant]
     Active Substance: DICLOFENAC SODIUM
  3. SYNRIBO [Suspect]
     Active Substance: OMACETAXINE MEPESUCCINATE
     Indication: CHRONIC MYELOID LEUKAEMIA
     Dosage: 2.1MG/0.61ML
     Route: 065
     Dates: start: 20151202
  4. TRIAMTERENE. [Concomitant]
     Active Substance: TRIAMTERENE
  5. TIMOLOL. [Concomitant]
     Active Substance: TIMOLOL
  6. FLONASE [Concomitant]
     Active Substance: FLUTICASONE PROPIONATE

REACTIONS (1)
  - Diarrhoea [Not Recovered/Not Resolved]

NARRATIVE: CASE EVENT DATE: 20151204
